FAERS Safety Report 23369663 (Version 1)
Quarter: 2024Q1

REPORT INFORMATION
  Report Type: Spontaneous
  Country: US (occurrence: None)
  Receive Date: 20240104
  Receipt Date: 20240104
  Transmission Date: 20240410
  Serious: No
  Sender: FDA-Public Use
  Company Number: None

PATIENT
  Age: 16 Year
  Sex: Female
  Weight: 52.65 kg

DRUGS (12)
  1. CANTHARIDIN [Suspect]
     Active Substance: CANTHARIDIN
     Indication: Skin papilloma
     Dates: start: 20231219, end: 20231219
  2. AYGESTIN [Concomitant]
     Active Substance: NORETHINDRONE ACETATE
  3. CYPROHEPTADINE [Concomitant]
     Active Substance: CYPROHEPTADINE
  4. DULOXETINE [Concomitant]
     Active Substance: DULOXETINE
  5. ELETRIPTAN [Concomitant]
     Active Substance: ELETRIPTAN
  6. Xoponex [Concomitant]
  7. HERBALS\TURMERIC [Concomitant]
     Active Substance: HERBALS\TURMERIC
  8. VITAMIN B12 [Concomitant]
     Active Substance: CYANOCOBALAMIN
  9. VITAMIN D3 [Concomitant]
     Active Substance: CHOLECALCIFEROL
  10. VITAMINS [Concomitant]
     Active Substance: VITAMINS
  11. PROBIOTICS NOS [Concomitant]
     Active Substance: PROBIOTICS NOS
  12. omega [Concomitant]

REACTIONS (5)
  - Product communication issue [None]
  - Application site pain [None]
  - Application site erythema [None]
  - Application site vesicles [None]
  - Therapeutic product effect delayed [None]

NARRATIVE: CASE EVENT DATE: 20231219
